FAERS Safety Report 5739347-5 (Version None)
Quarter: 2008Q2

REPORT INFORMATION
  Report Type: 
  Country: None (occurrence: None)
  Receive Date: 20080512
  Receipt Date: 20080229
  Transmission Date: 20081010
  Serious: Yes (Other)
  Sender: FDA-Public Use
  Company Number: 45716

PATIENT
  Age: 64 Year
  Sex: Female
  Weight: 90.7194 kg

DRUGS (8)
  1. ACETYLCYSTEINE [Suspect]
     Indication: INCREASED UPPER AIRWAY SECRETION
     Dosage: 3ML INHALATION TWICE DAILY
     Route: 055
  2. DIOVAN [Concomitant]
  3. LIPITOR [Concomitant]
  4. FUROSEMIDE [Concomitant]
  5. INSULIN [Concomitant]
  6. LYRICA [Concomitant]
  7. NEXIUM [Concomitant]
  8. NASONEX [Concomitant]

REACTIONS (1)
  - DRUG INEFFECTIVE [None]
